FAERS Safety Report 4340531-6 (Version None)
Quarter: 2004Q2

REPORT INFORMATION
  Report Type: 
  Country: None (occurrence: None)
  Receive Date: 20040414
  Receipt Date: 20040407
  Transmission Date: 20050107
  Serious: Yes (Hospitalization, Other)
  Sender: FDA-Public Use
  Company Number: 2004-04-0234

PATIENT
  Age: 5 Year
  Sex: Female

DRUGS (5)
  1. NASONEX [Suspect]
     Indication: ASTHMA
     Dosage: BID NASAL SPRAY
     Dates: start: 20031015
  2. BECOTIDE [Suspect]
     Indication: ASTHMA
     Dosage: QD INHALATION
     Dates: start: 20010915
  3. SEREVENT [Suspect]
     Indication: ASTHMA
     Dosage: BID INHALATION
     Dates: start: 20010915
  4. CLARITHROMYCIN [Suspect]
     Indication: PHARYNGOLARYNGEAL PAIN
     Dosage: ORAL
     Route: 048
  5. AERIUS (DESLORATADINE) TABLETS [Concomitant]

REACTIONS (15)
  - BODY TEMPERATURE INCREASED [None]
  - DIPLOPIA [None]
  - DRUG LEVEL INCREASED [None]
  - DYSPHAGIA [None]
  - HEADACHE [None]
  - INTRACRANIAL PRESSURE INCREASED [None]
  - PAIN IN EXTREMITY [None]
  - PAPILLOEDEMA [None]
  - PHARYNGOLARYNGEAL PAIN [None]
  - RETINAL HAEMORRHAGE [None]
  - SINUSITIS [None]
  - STRABISMUS [None]
  - VISION BLURRED [None]
  - VITH NERVE PARALYSIS [None]
  - VOMITING [None]
